FAERS Safety Report 8860397 (Version 2)
Quarter: 2012Q4

REPORT INFORMATION
  Report Type: 
  Country: JP (occurrence: JP)
  Receive Date: 20121025
  Receipt Date: 20121029
  Transmission Date: 20130627
  Serious: No
  Sender: FDA-Public Use
  Company Number: JP-JNJFOC-20121008774

PATIENT
  Age: 70 Year
  Sex: Female

DRUGS (1)
  1. DUROTEP MT [Suspect]
     Indication: CANCER PAIN
     Route: 062

REACTIONS (3)
  - Drug prescribing error [Recovered/Resolved]
  - Wrong technique in drug usage process [Unknown]
  - Product quality issue [Unknown]
